FAERS Safety Report 8116018-1 (Version None)
Quarter: 2012Q1

REPORT INFORMATION
  Report Type: 
  Country: None (occurrence: None)
  Receive Date: 20120201
  Receipt Date: 20120116
  Transmission Date: 20120608
  Serious: Yes (Hospitalization, Other)
  Sender: FDA-Public Use
  Company Number: 062-21880-11112593

PATIENT
  Sex: Female

DRUGS (28)
  1. REVLIMID [Suspect]
     Indication: PRODUCT USED FOR UNKNOWN INDICATION
     Dosage: 10 MG, PO;  10 MG PO
     Route: 048
     Dates: start: 20110418, end: 20110728
  2. REVLIMID [Suspect]
     Indication: PRODUCT USED FOR UNKNOWN INDICATION
     Dosage: 10 MG, PO;  10 MG PO
     Route: 048
     Dates: start: 20110301, end: 20110301
  3. PRIVIGEN [Concomitant]
  4. PARENTERAL NUTRITION (SOLUTIONS FOR PARENTERAL NUTRITION) [Concomitant]
  5. ACYCLOVIR [Concomitant]
  6. NULYTELY [Concomitant]
  7. ISONIAZID [Concomitant]
  8. METOCLOPRAMIDE [Concomitant]
  9. FESOTERODIN [Concomitant]
  10. MORPHINE SULFATE [Concomitant]
  11. LYRICA [Concomitant]
  12. PANTOPRAZOLE SODIUM [Concomitant]
  13. FOLIC ACID [Concomitant]
  14. NOVALGIN (METAMIZOLE SODIUM) [Concomitant]
  15. MEROPENEM [Concomitant]
  16. POTASSIUM CHLORIDE [Concomitant]
  17. FOLIC ACID [Concomitant]
  18. DESLORATADINE [Concomitant]
  19. ZOMETA [Concomitant]
  20. PAMIFOS (PAMIDRONATE DISODIUM) [Concomitant]
  21. RIFAMPICIN [Concomitant]
  22. PIPERACILLIN AND TAZOBACTAM [Concomitant]
  23. VOMEX A [Concomitant]
  24. TOVIAZ [Concomitant]
  25. ETAMBUTOL (ETHAMBUTOL) [Concomitant]
  26. ASPIRIN [Concomitant]
  27. METOPROLOL SUCCINATE [Concomitant]
  28. ENOXAPARIN SODIUM [Concomitant]

REACTIONS (8)
  - BRAIN OEDEMA [None]
  - ABDOMINAL PAIN [None]
  - GRANULOMATOUS LIVER DISEASE [None]
  - HERPES ZOSTER [None]
  - HAEMOGLOBIN DECREASED [None]
  - ENCEPHALITIS VIRAL [None]
  - STAPHYLOCOCCAL INFECTION [None]
  - ECZEMA [None]
